FAERS Safety Report 22391714 (Version 2)
Quarter: 2023Q2

REPORT INFORMATION
  Report Type: Spontaneous
  Country: US (occurrence: US)
  Receive Date: 20230601
  Receipt Date: 20230605
  Transmission Date: 20230722
  Serious: No
  Sender: FDA-Public Use
  Company Number: US-002147023-NVSC2023US124512

PATIENT

DRUGS (1)
  1. INCLISIRAN [Suspect]
     Active Substance: INCLISIRAN
     Indication: Arteriosclerosis
     Dosage: 284 MG, ONCE/SINGLE
     Route: 058

REACTIONS (1)
  - Low density lipoprotein increased [Not Recovered/Not Resolved]
